FAERS Safety Report 14763658 (Version 2)
Quarter: 2018Q2

REPORT INFORMATION
  Report Type: Spontaneous
  Country: ZA (occurrence: ZA)
  Receive Date: 20180416
  Receipt Date: 20180420
  Transmission Date: 20180711
  Serious: Yes (Death, Other)
  Sender: FDA-Public Use
  Company Number: ZA-PFIZER INC-2018152614

PATIENT
  Age: 33 Year
  Sex: Male

DRUGS (4)
  1. PREDNISONE. [Suspect]
     Active Substance: PREDNISONE
     Indication: HODGKIN^S DISEASE
     Dosage: UNK
     Dates: start: 197811, end: 197903
  2. PROCARBAZINE [Suspect]
     Active Substance: PROCARBAZINE
     Indication: HODGKIN^S DISEASE
     Dosage: UNK
     Dates: start: 197811, end: 197903
  3. VINBLASTINE [Suspect]
     Active Substance: VINBLASTINE
     Dosage: UNK
     Dates: start: 197811, end: 197903
  4. MECHLORETHAMINE [Suspect]
     Active Substance: MECHLORETHAMINE
     Indication: HODGKIN^S DISEASE
     Dosage: UNK

REACTIONS (2)
  - Second primary malignancy [Fatal]
  - Acute promyelocytic leukaemia [Fatal]
